FAERS Safety Report 26154830 (Version 1)
Quarter: 2025Q4

REPORT INFORMATION
  Report Type: Spontaneous
  Country: US (occurrence: US)
  Receive Date: 20251215
  Receipt Date: 20251215
  Transmission Date: 20260117
  Serious: Yes (Hospitalization)
  Sender: DR REDDYS
  Company Number: US-DRL-USA-USA/2025/12/018823

PATIENT
  Age: 58 Year
  Sex: Male

DRUGS (3)
  1. LAMOTRIGINE [Suspect]
     Active Substance: LAMOTRIGINE
     Indication: Product used for unknown indication
  2. METOPROLOL [Concomitant]
     Active Substance: METOPROLOL
     Indication: Product used for unknown indication
  3. RITALIN [Concomitant]
     Active Substance: METHYLPHENIDATE HYDROCHLORIDE
     Indication: Product used for unknown indication

REACTIONS (5)
  - Toxicity to various agents [Recovered/Resolved]
  - Dysarthria [Recovered/Resolved]
  - Dysmetria [Recovered/Resolved]
  - Diplopia [Recovering/Resolving]
  - Ataxia [Recovered/Resolved]
